FAERS Safety Report 21549976 (Version 3)
Quarter: 2023Q1

REPORT INFORMATION
  Report Type: Spontaneous
  Country: PL (occurrence: PL)
  Receive Date: 20221103
  Receipt Date: 20230213
  Transmission Date: 20230418
  Serious: Yes (Hospitalization, Other)
  Sender: FDA-Public Use
  Company Number: PL-MYLANLABS-2022M1116057

PATIENT
  Age: 43 Year
  Sex: Male

DRUGS (81)
  1. EFAVIRENZ [Suspect]
     Active Substance: EFAVIRENZ
     Indication: Acquired immunodeficiency syndrome
     Dosage: 800 MILLIGRAM, QD
     Dates: start: 2011
  2. EFAVIRENZ [Suspect]
     Active Substance: EFAVIRENZ
  3. EFAVIRENZ [Suspect]
     Active Substance: EFAVIRENZ
  4. EFAVIRENZ [Suspect]
     Active Substance: EFAVIRENZ
  5. EFAVIRENZ [Suspect]
     Active Substance: EFAVIRENZ
  6. RITONAVIR [Suspect]
     Active Substance: RITONAVIR
     Indication: HIV infection
     Dosage: 100 MILLIGRAM, BID
  7. RITONAVIR [Suspect]
     Active Substance: RITONAVIR
  8. ISENTRESS [Suspect]
     Active Substance: RALTEGRAVIR POTASSIUM
     Indication: HIV infection
     Dosage: 400 MILLIGRAM, BID
     Dates: start: 201112
  9. ISENTRESS [Suspect]
     Active Substance: RALTEGRAVIR POTASSIUM
     Dosage: QD; 2 X 400MG
  10. TRUVADA [Suspect]
     Active Substance: EMTRICITABINE\TENOFOVIR DISOPROXIL FUMARATE
     Indication: HIV infection
     Dosage: 1 DOSAGE FORM, QD
     Dates: start: 2011
  11. PREZISTA [Suspect]
     Active Substance: DARUNAVIR ETHANOLATE
     Indication: Acquired immunodeficiency syndrome
     Dosage: 600 MILLIGRAM, BID
  12. KIVEXA [Suspect]
     Active Substance: ABACAVIR SULFATE\LAMIVUDINE
     Indication: Acquired immunodeficiency syndrome
     Dosage: QD
     Dates: start: 201112
  13. KIVEXA [Suspect]
     Active Substance: ABACAVIR SULFATE\LAMIVUDINE
     Dosage: QD
  14. KALETRA [Suspect]
     Active Substance: LOPINAVIR\RITONAVIR
     Indication: Acquired immunodeficiency syndrome
     Dosage: UNK UNK, BID; TWO TABLETS
  15. STREPTOMYCIN [Suspect]
     Active Substance: STREPTOMYCIN SULFATE
     Indication: Tuberculosis
     Dosage: 1 MG. QD
  16. STREPTOMYCIN [Suspect]
     Active Substance: STREPTOMYCIN SULFATE
  17. RIFAMPIN [Suspect]
     Active Substance: RIFAMPIN
     Indication: Tuberculosis
     Dates: start: 201104
  18. RIFAMPIN [Suspect]
     Active Substance: RIFAMPIN
  19. ABACAVIR\LAMIVUDINE [Suspect]
     Active Substance: ABACAVIR\LAMIVUDINE
     Indication: HIV infection
  20. ABACAVIR\LAMIVUDINE [Suspect]
     Active Substance: ABACAVIR\LAMIVUDINE
  21. DARUNAVIR [Suspect]
     Active Substance: DARUNAVIR
     Indication: HIV infection
     Dosage: 600 MG, BID
  22. DARUNAVIR [Suspect]
     Active Substance: DARUNAVIR
  23. LEVOFLOXACIN [Suspect]
     Active Substance: LEVOFLOXACIN
     Indication: Tuberculosis
     Dosage: 250 MG, BID
     Route: 048
  24. LEVOFLOXACIN [Suspect]
     Active Substance: LEVOFLOXACIN
     Dosage: 500 MILLIGRAM, BID
     Route: 048
  25. LOPINAVIR\RITONAVIR [Suspect]
     Active Substance: LOPINAVIR\RITONAVIR
     Indication: HIV infection
     Dosage: 2 DF, BID
  26. LOPINAVIR\RITONAVIR [Suspect]
     Active Substance: LOPINAVIR\RITONAVIR
  27. FLUCONAZOLE [Suspect]
     Active Substance: FLUCONAZOLE
     Indication: Candida infection
     Dosage: 100 MG, BID
     Route: 048
  28. FLUCONAZOLE [Suspect]
     Active Substance: FLUCONAZOLE
     Dosage: 100 MG, QD
     Route: 048
  29. FLUCONAZOLE [Suspect]
     Active Substance: FLUCONAZOLE
     Dosage: 150 MG
     Route: 048
  30. MEROPENEM [Suspect]
     Active Substance: MEROPENEM
     Indication: Urinary tract infection
     Dosage: 1000 MG, QOD
     Route: 042
  31. MEROPENEM [Suspect]
     Active Substance: MEROPENEM
     Dosage: 500 MG, Q6H
  32. EFAVIRENZ [Suspect]
     Active Substance: EFAVIRENZ
     Indication: HIV infection
     Dates: start: 2011
  33. EFAVIRENZ [Suspect]
     Active Substance: EFAVIRENZ
  34. LEVOFLOXACIN [Suspect]
     Active Substance: LEVOFLOXACIN
     Indication: Tuberculosis
     Dosage: 500 MILLIGRAM, BID
  35. LEVOFLOXACIN [Suspect]
     Active Substance: LEVOFLOXACIN
  36. LEVOFLOXACIN [Suspect]
     Active Substance: LEVOFLOXACIN
     Dosage: 250 MG, BID
  37. CLARITHROMYCIN [Suspect]
     Active Substance: CLARITHROMYCIN
     Indication: Tuberculosis
     Dosage: 500 MILLIGRAM, BID
  38. CLARITHROMYCIN [Suspect]
     Active Substance: CLARITHROMYCIN
     Indication: Prophylaxis
     Dosage: 500 MG, QD?CLARITHROMYCIN GENOPTIM 250 MG TABLET
     Route: 048
  39. CLARITHROMYCIN [Suspect]
     Active Substance: CLARITHROMYCIN
     Dosage: 250 MG
  40. CLARITHROMYCIN [Suspect]
     Active Substance: CLARITHROMYCIN
     Dosage: 960 MG, QOD
  41. PYRAZINAMIDE [Suspect]
     Active Substance: PYRAZINAMIDE
     Indication: Tuberculosis
     Dates: start: 201104
  42. PYRAZINAMIDE [Suspect]
     Active Substance: PYRAZINAMIDE
     Dates: start: 201104
  43. MEROPENEM [Suspect]
     Active Substance: MEROPENEM
     Indication: Urinary tract infection
     Dosage: 2000 MILLIGRAM, QD; INTRAVENOUS (NOT SPECIFIED)
     Route: 042
  44. MEROPENEM [Suspect]
     Active Substance: MEROPENEM
     Indication: Urinary tract infection
     Dosage: 500 MG, QID
     Route: 042
  45. MEROPENEM [Suspect]
     Active Substance: MEROPENEM
     Dosage: 200 MG, QD
     Route: 042
  46. FOSFOMYCIN [Suspect]
     Active Substance: FOSFOMYCIN
     Indication: Enterobacter infection
     Dosage: UNK; INTERMITTENTLY
  47. FOSFOMYCIN [Suspect]
     Active Substance: FOSFOMYCIN
     Indication: Urinary tract infection
  48. FOSFOMYCIN [Suspect]
     Active Substance: FOSFOMYCIN
     Indication: Urinary tract inflammation
  49. FLUCONAZOLE [Suspect]
     Active Substance: FLUCONAZOLE
     Indication: Candida infection
     Dosage: 100 MILLIGRAM, BID
     Route: 048
  50. FLUCONAZOLE [Suspect]
     Active Substance: FLUCONAZOLE
     Indication: Candida infection
     Dosage: 100 MG, QD
     Route: 048
  51. FLUCONAZOLE [Suspect]
     Active Substance: FLUCONAZOLE
     Indication: Candida infection
  52. FLUCONAZOLE [Suspect]
     Active Substance: FLUCONAZOLE
     Indication: Candida infection
  53. PYRIMETHAMINE [Suspect]
     Active Substance: PYRIMETHAMINE
     Indication: Evidence based treatment
     Dosage: 50 MILLIGRAM, QD
     Route: 048
  54. PYRIMETHAMINE [Suspect]
     Active Substance: PYRIMETHAMINE
     Indication: Toxoplasmosis
  55. CLINDAMYCIN [Suspect]
     Active Substance: CLINDAMYCIN
     Indication: Evidence based treatment
     Dosage: 600 MILLIGRAM, TID; THREE TIMES A DAY
  56. CLINDAMYCIN [Suspect]
     Active Substance: CLINDAMYCIN
     Indication: Toxoplasmosis
  57. CLOFAZIMINE [Suspect]
     Active Substance: CLOFAZIMINE
     Indication: Tuberculosis
     Dosage: 100 MILLIGRAM, BID
     Route: 048
  58. CLOFAZIMINE [Suspect]
     Active Substance: CLOFAZIMINE
  59. ETHIONAMIDE [Suspect]
     Active Substance: ETHIONAMIDE
     Indication: Tuberculosis
     Dosage: 750 MILLIGRAM, BID
  60. ETHIONAMIDE [Suspect]
     Active Substance: ETHIONAMIDE
  61. ISONIAZID [Suspect]
     Active Substance: ISONIAZID
     Indication: Tuberculosis
     Dates: start: 201104
  62. ISONIAZID [Suspect]
     Active Substance: ISONIAZID
     Dates: start: 201104
  63. COTRIMOXAZOLE [Suspect]
     Active Substance: SULFAMETHOXAZOLE\TRIMETHOPRIM
     Indication: Antifungal prophylaxis
     Dosage: 960 MILLIGRAM; EVERY OTHER DAY
     Route: 048
  64. COTRIMOXAZOLE [Suspect]
     Active Substance: SULFAMETHOXAZOLE\TRIMETHOPRIM
  65. ERTAPENEM [Suspect]
     Active Substance: ERTAPENEM
     Indication: Urinary tract infection
     Dosage: 1000 MILLIGRAM, QD
  66. ERTAPENEM [Suspect]
     Active Substance: ERTAPENEM
     Indication: Enterobacter infection
  67. ERTAPENEM [Suspect]
     Active Substance: ERTAPENEM
     Indication: Urinary tract inflammation
  68. OSELTAMIVIR [Concomitant]
     Active Substance: OSELTAMIVIR
     Indication: H1N1 influenza
     Dosage: UNK; 2 X 75 MG
     Route: 048
  69. OSELTAMIVIR [Concomitant]
     Active Substance: OSELTAMIVIR
  70. OSELTAMIVIR [Concomitant]
     Active Substance: OSELTAMIVIR
     Dosage: UNK; 2 X 75 MG
     Route: 048
  71. OSELTAMIVIR [Concomitant]
     Active Substance: OSELTAMIVIR
     Dosage: UNK; 2 X 75 MG
     Route: 048
  72. OSELTAMIVIR [Concomitant]
     Active Substance: OSELTAMIVIR
     Dosage: UNK; 2 X 75 MG
     Route: 048
  73. VORICONAZOLE [Concomitant]
     Active Substance: VORICONAZOLE
     Indication: Candida infection
     Dosage: 0.2 GRAM, BID
     Route: 048
  74. VORICONAZOLE [Concomitant]
     Active Substance: VORICONAZOLE
     Indication: Candida infection
     Dosage: 0.4 GRAM, BID
     Route: 048
  75. VORICONAZOLE [Concomitant]
     Active Substance: VORICONAZOLE
     Indication: Candida infection
  76. VORICONAZOLE [Concomitant]
     Active Substance: VORICONAZOLE
     Indication: Candida infection
  77. GANCICLOVIR [Concomitant]
     Active Substance: GANCICLOVIR
     Indication: Cytomegalovirus chorioretinitis
     Dosage: 250 MILLIGRAM, BID; INTRAVENOUS (NOT SPECIFIED)
     Route: 042
  78. GANCICLOVIR [Concomitant]
     Active Substance: GANCICLOVIR
  79. ALBUMIN HUMAN [Concomitant]
     Active Substance: ALBUMIN HUMAN
     Indication: Product used for unknown indication
  80. ETHAMBUTOL [Concomitant]
     Active Substance: ETHAMBUTOL HYDROCHLORIDE
     Indication: Tuberculosis
     Dates: start: 201104
  81. DARUNAVIR\RITONAVIR [Concomitant]
     Active Substance: DARUNAVIR\RITONAVIR
     Indication: Product used for unknown indication

REACTIONS (16)
  - Myalgia [Unknown]
  - Neuropsychiatric symptoms [Unknown]
  - Diarrhoea [Unknown]
  - Nausea [Unknown]
  - Urinary tract infection [Unknown]
  - Drug ineffective [Unknown]
  - Lymphopenia [Unknown]
  - Clostridium difficile colitis [Unknown]
  - Pancreatitis [Unknown]
  - Neutropenia [Unknown]
  - Urinary tract inflammation [Unknown]
  - Drug resistance [Unknown]
  - Hepatitis cholestatic [Unknown]
  - Blood bilirubin increased [Unknown]
  - Pathogen resistance [Unknown]
  - Conductive deafness [Unknown]
